FAERS Safety Report 8671744 (Version 2)
Quarter: 2012Q4

REPORT INFORMATION
  Report Type: 
  Country: ES (occurrence: ES)
  Receive Date: 20120718
  Receipt Date: 20120913
  Transmission Date: 20130627
  Serious: Yes (Hospitalization)
  Sender: FDA-Public Use
  Company Number: ES-NOVEN-12ES004929

PATIENT
  Age: 81 Year
  Sex: Female

DRUGS (2)
  1. PAROXETINE [Suspect]
     Indication: DEPRESSION
     Dosage: 10 mg, qd
     Route: 048
  2. UNKNOWN [Concomitant]

REACTIONS (5)
  - General physical health deterioration [Unknown]
  - Anaemia [Unknown]
  - Asthenia [Unknown]
  - Inappropriate antidiuretic hormone secretion [Recovered/Resolved]
  - Somnolence [Unknown]
